FAERS Safety Report 9554079 (Version 3)
Quarter: 2014Q1

REPORT INFORMATION
  Report Type: Report from Study
  Country: CA (occurrence: CA)
  Receive Date: 20130925
  Receipt Date: 20140124
  Transmission Date: 20141002
  Serious: Yes (Other)
  Sender: FDA-Public Use
  Company Number: CA-ABBVIE-13P-028-1040455-00

PATIENT
  Age: 38 Year
  Sex: Female

DRUGS (3)
  1. KALETRA TABLETS 200/50 [Suspect]
     Indication: ANTIRETROVIRAL THERAPY
     Dosage: 800MG/200MG
     Route: 048
     Dates: start: 20121108
  2. MATERNA [Concomitant]
     Indication: PRODUCT USED FOR UNKNOWN INDICATION
     Route: 048
  3. TEVA LAMIVUDINE ZIDOVUDINE [Concomitant]
     Indication: HIV INFECTION
     Dosage: 150-300 MG
     Route: 048
     Dates: start: 20121108

REACTIONS (12)
  - Pre-eclampsia [Recovered/Resolved]
  - Diarrhoea [Recovered/Resolved]
  - Weight decreased [Unknown]
  - Diarrhoea [Not Recovered/Not Resolved]
  - Rash [Recovered/Resolved]
  - Vulvovaginal human papilloma virus infection [Unknown]
  - Pruritus [Unknown]
  - Pain [Unknown]
  - Suicidal ideation [Unknown]
  - Feeling abnormal [Unknown]
  - Crying [Unknown]
  - Malaise [Unknown]
